FAERS Safety Report 9051884 (Version 1)
Quarter: 2013Q1

REPORT INFORMATION
  Report Type: Spontaneous
  Country: US (occurrence: None)
  Receive Date: 20130130
  Receipt Date: 20130130
  Transmission Date: 20140127
  Serious: No
  Sender: FDA-Public Use
  Company Number: None

PATIENT
  Age: 52 Year
  Sex: Female
  Weight: 72.58 kg

DRUGS (2)
  1. PEPTO BISMOL [Suspect]
     Indication: ABDOMINAL DISCOMFORT
     Dates: start: 20130122, end: 20130124
  2. PEPTO BISMOL [Suspect]
     Indication: DIARRHOEA
     Dates: start: 20130122, end: 20130124

REACTIONS (1)
  - Faeces discoloured [None]
